FAERS Safety Report 17460147 (Version 2)
Quarter: 2020Q3

REPORT INFORMATION
  Report Type: Report from Study
  Country: US (occurrence: US)
  Receive Date: 20200225
  Receipt Date: 20200921
  Transmission Date: 20201102
  Serious: Yes (Hospitalization, Other)
  Sender: FDA-Public Use
  Company Number: US-GILEAD-2020-0449538

PATIENT
  Age: 79 Year
  Sex: Male

DRUGS (3)
  1. VENCLEXTA [Suspect]
     Active Substance: VENETOCLAX
     Dosage: IN AFTERNOON WITH LUNCH (4 TABLET, 1 IN 1 D)
     Route: 048
     Dates: start: 20200904
  2. VENCLEXTA [Suspect]
     Active Substance: VENETOCLAX
     Indication: CHRONIC LYMPHOCYTIC LEUKAEMIA
     Dosage: 2 TABLET (2 TABLET, 1 IN 1 D)
     Route: 048
     Dates: end: 202008
  3. IDELALISIB [Suspect]
     Active Substance: IDELALISIB
     Indication: CHRONIC LYMPHOCYTIC LEUKAEMIA
     Route: 065

REACTIONS (14)
  - Sputum discoloured [Unknown]
  - Cataract [Unknown]
  - Vomiting [Unknown]
  - Diarrhoea [Unknown]
  - Blood count abnormal [Unknown]
  - Pyrexia [Unknown]
  - Sinusitis fungal [Unknown]
  - Red blood cell count decreased [Unknown]
  - Cough [Unknown]
  - Body temperature abnormal [Unknown]
  - Dehydration [Unknown]
  - Muscle spasms [Unknown]
  - White blood cell count decreased [Unknown]
  - Headache [Unknown]
